FAERS Safety Report 4480198-X (Version None)
Quarter: 2004Q4

REPORT INFORMATION
  Report Type: 
  Country: None (occurrence: None)
  Receive Date: 20041020
  Receipt Date: 20041015
  Transmission Date: 20050328
  Serious: Yes (Hospitalization)
  Sender: FDA-Public Use
  Company Number: DE-MERCK-0410DEU00508

PATIENT
  Age: 73 Year
  Sex: Female
  Weight: 60 kg

DRUGS (3)
  1. VIOXX [Suspect]
     Indication: BONE PAIN
     Route: 048
     Dates: start: 20000101
  2. VIOXX [Suspect]
     Route: 048
     Dates: end: 20040101
  3. PHENPROCOUMON [Concomitant]
     Route: 065
     Dates: start: 19950101

REACTIONS (9)
  - CARPAL TUNNEL SYNDROME [None]
  - CHRONIC SINUSITIS [None]
  - CONDITION AGGRAVATED [None]
  - DIVERTICULAR PERFORATION [None]
  - DIVERTICULITIS [None]
  - FIBROMYALGIA [None]
  - MUSCULOSKELETAL PAIN [None]
  - POLYNEUROPATHY [None]
  - SPINAL DISORDER [None]
